FAERS Safety Report 7179778-2 (Version None)
Quarter: 2010Q4

REPORT INFORMATION
  Report Type: 
  Country: None (occurrence: None)
  Receive Date: 20101221
  Receipt Date: 20101209
  Transmission Date: 20110411
  Serious: Yes (Other)
  Sender: FDA-Public Use
  Company Number: IE-AMGEN-US440940

PATIENT

DRUGS (4)
  1. ENBREL [Suspect]
     Dosage: 50 MG, QWK
     Route: 058
     Dates: start: 20100731
  2. DICLOFENAC [Concomitant]
     Dosage: 7 MG, QD
     Route: 048
     Dates: start: 20090601
  3. FOLIC ACID [Concomitant]
     Dosage: 5 MG, QWK
     Route: 048
     Dates: start: 20091001
  4. METHOTREXATE [Concomitant]
     Dosage: 10 MG, QWK
     Route: 048
     Dates: start: 20091001

REACTIONS (1)
  - AMENORRHOEA [None]
